FAERS Safety Report 5728354-4 (Version None)
Quarter: 2008Q2

REPORT INFORMATION
  Report Type: 
  Country: None (occurrence: None)
  Receive Date: 20080506
  Receipt Date: 20080424
  Transmission Date: 20081010
  Serious: Yes (Other)
  Sender: FDA-Public Use
  Company Number: PHHY2008GB06782

PATIENT
  Age: 74 Year
  Sex: Male

DRUGS (3)
  1. CLOPIDOGREL [Concomitant]
     Indication: PLATELET AGGREGATION INHIBITION
     Dosage: 75 MG, UNK
  2. DICLOFENAC SODIUM [Suspect]
     Indication: RHEUMATOID ARTHRITIS
     Dosage: 1 DF/ WEEK
     Route: 048
  3. DICLOFENAC SODIUM [Suspect]
     Dosage: 1 DF TWICE OR THRICE/WEEK
     Route: 048

REACTIONS (9)
  - ARTHRITIS [None]
  - BALANCE DISORDER [None]
  - DIARRHOEA [None]
  - DIPLOPIA [None]
  - DYSARTHRIA [None]
  - PAIN [None]
  - PROSTATE EXAMINATION ABNORMAL [None]
  - PROSTATECTOMY [None]
  - TRANSIENT ISCHAEMIC ATTACK [None]
